FAERS Safety Report 25036971 (Version 4)
Quarter: 2025Q1

REPORT INFORMATION
  Report Type: Spontaneous
  Country: CA (occurrence: CA)
  Receive Date: 20250304
  Receipt Date: 20250328
  Transmission Date: 20250408
  Serious: Yes (Other)
  Sender: PFIZER
  Company Number: CA-PFIZER INC-202400207010

PATIENT
  Age: 49 Year
  Sex: Female

DRUGS (9)
  1. RUXIENCE [Suspect]
     Active Substance: RITUXIMAB-PVVR
     Indication: Granulomatosis with polyangiitis
     Route: 042
     Dates: start: 20240813, end: 20240813
  2. AZATHIOPRINE [Concomitant]
     Active Substance: AZATHIOPRINE
  3. ALENDRONATE [Concomitant]
     Active Substance: ALENDRONATE SODIUM
  4. PANTOPRAZOLE [Concomitant]
     Active Substance: PANTOPRAZOLE
  5. PREDNISONE [Concomitant]
     Active Substance: PREDNISONE
     Dates: end: 20250308
  6. SULFATRIM [Concomitant]
     Active Substance: SULFAMETHOXAZOLE\TRIMETHOPRIM
     Dosage: 80 MG, DAILY
  7. SPECTRA [DOXEPIN HYDROCHLORIDE] [Concomitant]
  8. SYMBICORT [Concomitant]
     Active Substance: BUDESONIDE\FORMOTEROL FUMARATE DIHYDRATE
  9. SEPTRA [Concomitant]
     Active Substance: SULFAMETHOXAZOLE\TRIMETHOPRIM
     Dosage: 80 MG, DAILY

REACTIONS (15)
  - Pneumonia [Unknown]
  - Tooth fracture [Unknown]
  - Throat irritation [Recovered/Resolved]
  - Viral infection [Unknown]
  - Nasopharyngitis [Unknown]
  - Asthma [Recovering/Resolving]
  - Cough [Unknown]
  - Dyspnoea [Recovering/Resolving]
  - Wheezing [Unknown]
  - Sinusitis [Not Recovered/Not Resolved]
  - Rhinorrhoea [Unknown]
  - Vasculitis [Not Recovered/Not Resolved]
  - C-reactive protein increased [Unknown]
  - Haemoptysis [Unknown]
  - Off label use [Unknown]

NARRATIVE: CASE EVENT DATE: 20240813
